FAERS Safety Report 4831520-3 (Version None)
Quarter: 2005Q4

REPORT INFORMATION
  Report Type: 
  Country: None (occurrence: None)
  Receive Date: 20051116
  Receipt Date: 20051101
  Transmission Date: 20060501
  Serious: No
  Sender: FDA-Public Use
  Company Number: 05H-163-0303419-00

PATIENT
  Age: 75 Year
  Sex: Male

DRUGS (1)
  1. EPINEPHRINE [Suspect]
     Indication: EYE DISORDER
     Dosage: INTRAOCULAR FLUSH
     Dates: start: 20051024, end: 20051024

REACTIONS (3)
  - EYE INFECTION INTRAOCULAR [None]
  - VISUAL ACUITY REDUCED [None]
  - VITREOUS FLOATERS [None]
